FAERS Safety Report 9833247 (Version 3)
Quarter: 2014Q2

REPORT INFORMATION
  Report Type: Report from Study
  Country: GR (occurrence: GR)
  Receive Date: 20140121
  Receipt Date: 20140417
  Transmission Date: 20141212
  Serious: Yes (Other)
  Sender: FDA-Public Use
  Company Number: GR-B.I. PHARMACEUTICALS,INC./RIDGEFIELD-2014-BI-01701II

PATIENT
  Age: 77 Year
  Sex: Male
  Weight: 78 kg

DRUGS (5)
  1. BIBW 2992 [Suspect]
     Indication: METASTATIC GASTRIC CANCER
     Dosage: DAILY DOSE: 40 MG TDS RATHER THAN OD
     Route: 048
     Dates: start: 20131231, end: 20140102
  2. CISPLATIN [Suspect]
     Indication: METASTATIC GASTRIC CANCER
     Dosage: 135 MG
     Route: 042
     Dates: start: 20131231, end: 20131231
  3. 5 FU (FLUOROURACIL) [Suspect]
     Indication: METASTATIC GASTRIC CANCER
     Dosage: 5400 MG
     Route: 042
     Dates: start: 20131231, end: 20140103
  4. 5 FU (FLUOROURACIL) [Suspect]
     Dosage: 1350 MG
     Route: 042
     Dates: start: 20131231, end: 20140103
  5. PRADAXA [Concomitant]
     Indication: CORONARY ARTERY DISEASE
     Route: 048

REACTIONS (2)
  - Diarrhoea [Recovered/Resolved]
  - Overdose [Recovered/Resolved]
